FAERS Safety Report 24090097 (Version 2)
Quarter: 2024Q3

REPORT INFORMATION
  Report Type: Report from Study
  Country: CN (occurrence: CN)
  Receive Date: 20240715
  Receipt Date: 20240810
  Transmission Date: 20241017
  Serious: Yes (Hospitalization, Other)
  Sender: SANOFI AVENTIS
  Company Number: CN-SA-SAC20240709000755

PATIENT
  Age: 1 Year
  Sex: Male
  Weight: 10 kg

DRUGS (2)
  1. DUPILUMAB [Suspect]
     Active Substance: DUPILUMAB
     Indication: Dermatitis atopic
     Dosage: 300 MG, 1X
     Route: 058
     Dates: start: 20240702, end: 20240702
  2. DUPILUMAB [Suspect]
     Active Substance: DUPILUMAB
     Dosage: 300 MG, Q4W
     Route: 058
     Dates: start: 20240802

REACTIONS (5)
  - Pneumonia [Recovering/Resolving]
  - Pyrexia [Recovering/Resolving]
  - Productive cough [Recovering/Resolving]
  - Pyrexia [Unknown]
  - Incorrect dose administered [Unknown]

NARRATIVE: CASE EVENT DATE: 20240702
